FAERS Safety Report 9097100 (Version 3)
Quarter: 2013Q1

REPORT INFORMATION
  Report Type: Spontaneous
  Country: RO (occurrence: None)
  Receive Date: 20130123
  Receipt Date: 20130319
  Transmission Date: 20140127
  Serious: Yes (Hospitalization)
  Sender: FDA-Public Use
  Company Number: AUR-APL-2013-00835

PATIENT
  Age: 74 Year
  Sex: Female

DRUGS (6)
  1. SIMVASTATIN [Suspect]
     Indication: PRODUCT USED FOR UNKNOWN INDICATION
  2. FLUCONAZOLE [Suspect]
     Indication: PRODUCT USED FOR UNKNOWN INDICATION
     Dosage: 2 DOSAGE FORMS, 1 WK, UNKNOWN
  3. INDAPAMIDE (INDAPAMIDE) [Concomitant]
  4. TRIMETAZIDINE (TRIMETAZINDINE) [Concomitant]
  5. LOSARTAN (LOSARTAN) [Concomitant]
  6. MEBEVERINE (MEBEVERINE) [Concomitant]

REACTIONS (6)
  - Drug interaction [None]
  - Myalgia [None]
  - Abdominal pain [None]
  - Spinal pain [None]
  - Blood cholesterol increased [None]
  - Blood fibrinogen increased [None]
